FAERS Safety Report 11733420 (Version 2)
Quarter: 2015Q4

REPORT INFORMATION
  Report Type: Report from Study
  Country: CA (occurrence: CA)
  Receive Date: 20151113
  Receipt Date: 20151210
  Transmission Date: 20160304
  Serious: Yes (Other)
  Sender: FDA-Public Use
  Company Number: CA-ROCHE-1647633

PATIENT
  Age: 91 Year
  Sex: Female

DRUGS (9)
  1. RITUXAN [Suspect]
     Active Substance: RITUXIMAB
     Indication: WARM TYPE HAEMOLYTIC ANAEMIA
     Route: 042
     Dates: start: 20150924
  2. RITUXAN [Suspect]
     Active Substance: RITUXIMAB
     Dosage: WEEKLY
     Route: 042
     Dates: start: 20151022
  3. PREDNISONE. [Concomitant]
     Active Substance: PREDNISONE
  4. RITUXAN [Suspect]
     Active Substance: RITUXIMAB
     Dosage: WEEKLY, FIRST RPAP DOSE
     Route: 042
     Dates: start: 20151015
  5. CRESTOR [Concomitant]
     Active Substance: ROSUVASTATIN CALCIUM
  6. ACETAMINOPHEN. [Concomitant]
     Active Substance: ACETAMINOPHEN
     Indication: PREMEDICATION
     Route: 048
     Dates: start: 20151015
  7. VALSARTAN. [Concomitant]
     Active Substance: VALSARTAN
  8. RITUXAN [Suspect]
     Active Substance: RITUXIMAB
     Dosage: WEEKLY
     Route: 042
     Dates: start: 20151029
  9. ASA [Concomitant]
     Active Substance: ASPIRIN
     Dosage: PRECAUTION MEDICATION, DAILY
     Route: 065

REACTIONS (6)
  - Blood pressure increased [Unknown]
  - Deep vein thrombosis [Unknown]
  - Off label use [Unknown]
  - Blood pressure fluctuation [Unknown]
  - Pigmentation disorder [Unknown]
  - Blood pressure increased [Unknown]

NARRATIVE: CASE EVENT DATE: 20151015
